FAERS Safety Report 14580748 (Version 2)
Quarter: 2024Q4

REPORT INFORMATION
  Report Type: Spontaneous
  Country: FR (occurrence: FR)
  Receive Date: 20180228
  Receipt Date: 20241119
  Transmission Date: 20250115
  Serious: Yes (Hospitalization, Congenital Anomaly, Other)
  Sender: TEVA
  Company Number: None

PATIENT
  Age: 0 Day
  Sex: Female
  Weight: 2.2 kg

DRUGS (7)
  1. NEVIRAPINE [Suspect]
     Active Substance: NEVIRAPINE
     Indication: Prophylaxis against HIV infection
     Dosage: NEVIRAPINE ANHYDROUS
     Route: 048
  2. KIVEXA [Suspect]
     Active Substance: ABACAVIR SULFATE\LAMIVUDINE
     Indication: HIV infection
     Route: 064
     Dates: start: 201605, end: 20170129
  3. VIRAMUNE [Suspect]
     Active Substance: NEVIRAPINE
     Indication: Prophylaxis against HIV infection
     Route: 048
  4. NORVIR [Suspect]
     Active Substance: RITONAVIR
     Indication: HIV infection
     Route: 064
     Dates: start: 20160501, end: 20170129
  5. PREZISTA [Suspect]
     Active Substance: DARUNAVIR ETHANOLATE
     Indication: HIV infection
     Dosage: PARENT ROUTE OF ADMINISTRATION: ORAL
     Route: 064
     Dates: start: 201605, end: 20170129
  6. EPZICOM [Suspect]
     Active Substance: ABACAVIR SULFATE\LAMIVUDINE
     Indication: HIV infection
     Dosage: PARENT  ROUTE OF ADMINISTRATION: UNKNOWN
     Route: 064
     Dates: start: 201605, end: 20170129
  7. REYATAZ [Suspect]
     Active Substance: ATAZANAVIR SULFATE
     Indication: HIV infection
     Dosage: PARENT ROUTE OF ADMINISTRATION: UNKNOWN
     Route: 064
     Dates: start: 201605, end: 20170129

REACTIONS (10)
  - Dilatation ventricular [Unknown]
  - Supernumerary nipple [Unknown]
  - Foetal exposure during pregnancy [Unknown]
  - Congenital naevus [Not Recovered/Not Resolved]
  - Acoustic stimulation tests abnormal [Unknown]
  - Dermatitis exfoliative generalised [Recovered/Resolved]
  - Low set ears [Unknown]
  - Breast disorder [Unknown]
  - Eosinophilia [Not Recovered/Not Resolved]
  - Foetal growth restriction [Recovering/Resolving]

NARRATIVE: CASE EVENT DATE: 20170129
